FAERS Safety Report 26010545 (Version 1)
Quarter: 2025Q4

REPORT INFORMATION
  Report Type: Report from Study
  Country: CA (occurrence: CA)
  Receive Date: 20251107
  Receipt Date: 20251107
  Transmission Date: 20260117
  Serious: Yes (Other)
  Sender: CELLTRION
  Company Number: CA-CELLTRION INC.-2025CA032466

PATIENT

DRUGS (15)
  1. USTEKINUMAB [Suspect]
     Active Substance: USTEKINUMAB
     Indication: Crohn^s disease
     Dosage: 90 MG SC AT WEEK 8
     Route: 058
  2. USTEKINUMAB [Suspect]
     Active Substance: USTEKINUMAB
     Dosage: 90 MG EVERY 8 WEEKS
     Route: 058
     Dates: end: 202507
  3. USTEKINUMAB [Suspect]
     Active Substance: USTEKINUMAB
     Dosage: 90 MG EVERY 6 WEEKS
     Route: 058
  4. STEQEYMA [Suspect]
     Active Substance: USTEKINUMAB-STBA
     Indication: Crohn^s disease
     Dosage: 390 MILLIGRAM IV AT WEEK 0
     Route: 042
     Dates: start: 20250410
  5. MESALAMINE [Concomitant]
     Active Substance: MESALAMINE
     Dosage: 1G 4 TIMES DAILY
  6. BUDESONIDE [Concomitant]
     Active Substance: BUDESONIDE
     Dosage: 9MG PO OD
     Route: 048
  7. PREDNISONE [Concomitant]
     Active Substance: PREDNISONE
     Dosage: 20MG PO OD
     Route: 048
  8. GABAPENTIN [Concomitant]
     Active Substance: GABAPENTIN
     Dosage: 100MG TID
  9. CANDESARTAN [Concomitant]
     Active Substance: CANDESARTAN
     Dosage: 16 1 PO OD
     Route: 048
  10. IRON [Concomitant]
     Active Substance: IRON
     Dosage: 300MG PO OD
     Route: 048
  11. VITAMIN B12 [Concomitant]
     Active Substance: CYANOCOBALAMIN
  12. AMLODIPINE [Concomitant]
     Active Substance: AMLODIPINE BESYLATE
     Dosage: 5MG PO OD
     Route: 048
  13. PANTOPRAZOLE SODIUM [Concomitant]
     Active Substance: PANTOPRAZOLE SODIUM
     Dosage: 40MG PO OD
     Route: 048
  14. ALPRAZOLAM [Concomitant]
     Active Substance: ALPRAZOLAM
     Dosage: 0.5MG AT HS
  15. DILTIAZEM [Concomitant]
     Active Substance: DILTIAZEM
     Dosage: 360 MG

REACTIONS (3)
  - Intestinal obstruction [Unknown]
  - Intentional product use issue [Unknown]
  - Treatment failure [Unknown]

NARRATIVE: CASE EVENT DATE: 20250901
